FAERS Safety Report 8328118-1 (Version None)
Quarter: 2012Q2

REPORT INFORMATION
  Report Type: 
  Country: None (occurrence: None)
  Receive Date: 20120502
  Receipt Date: 20120425
  Transmission Date: 20120825
  Serious: Yes (Hospitalization, Other)
  Sender: FDA-Public Use
  Company Number: PHEH2012US008893

PATIENT
  Sex: Female

DRUGS (2)
  1. DIOVAN [Suspect]
     Dosage: 80 MG, UNK
     Dates: start: 20111101
  2. CALCIUM [Concomitant]
     Dosage: UNK UKN, UNK

REACTIONS (6)
  - URINARY TRACT INFECTION [None]
  - PARAESTHESIA [None]
  - BLOOD SODIUM DECREASED [None]
  - BLOOD POTASSIUM DECREASED [None]
  - DEMENTIA [None]
  - SPEECH DISORDER [None]
